FAERS Safety Report 8626002-7 (Version None)
Quarter: 2012Q3

REPORT INFORMATION
  Report Type: 
  Country: None (occurrence: None)
  Receive Date: 20120827
  Receipt Date: 20120816
  Transmission Date: 20120928
  Serious: Yes (Other)
  Sender: FDA-Public Use
  Company Number: CN-ROCHE-1105955

PATIENT
  Sex: Male
  Weight: 70 kg

DRUGS (1)
  1. CAPECITABINE [Suspect]
     Indication: COLON CANCER
     Route: 048
     Dates: start: 20110311, end: 20110323

REACTIONS (8)
  - RASH [None]
  - SKIN SWELLING [None]
  - SKIN EXFOLIATION [None]
  - PAIN [None]
  - PIGMENTATION DISORDER [None]
  - ERYTHEMA [None]
  - MOUTH ULCERATION [None]
  - BLISTER [None]
